FAERS Safety Report 14389361 (Version 3)
Quarter: 2019Q2

REPORT INFORMATION
  Report Type: Spontaneous
  Country: US (occurrence: US)
  Receive Date: 20180115
  Receipt Date: 20190515
  Transmission Date: 20190711
  Serious: Yes (Other)
  Sender: FDA-Public Use
  Company Number: US-SA-2017SA242384

PATIENT
  Age: 51 Year
  Sex: Female
  Weight: 49.13 kg

DRUGS (3)
  1. TAXOTERE [Suspect]
     Active Substance: DOCETAXEL
     Dosage: 161 MG, Q3W
     Route: 042
     Dates: start: 20110726, end: 20110726
  2. NEOSAR [Concomitant]
     Active Substance: CYCLOPHOSPHAMIDE
     Dosage: UNK, UNK
     Route: 065
  3. TAXOTERE [Suspect]
     Active Substance: DOCETAXEL
     Indication: BREAST CANCER FEMALE
     Dosage: 161 MG, Q3W
     Route: 042
     Dates: start: 20110524, end: 20110524

REACTIONS (3)
  - Anxiety [Unknown]
  - Alopecia [Not Recovered/Not Resolved]
  - Emotional distress [Unknown]

NARRATIVE: CASE EVENT DATE: 201204
